FAERS Safety Report 17484340 (Version 3)
Quarter: 2020Q2

REPORT INFORMATION
  Report Type: Spontaneous
  Country: US (occurrence: US)
  Receive Date: 20200302
  Receipt Date: 20200623
  Transmission Date: 20200713
  Serious: Yes (Hospitalization, Other)
  Sender: FDA-Public Use
  Company Number: US-PFIZER INC-2020090893

PATIENT
  Age: 69 Year
  Sex: Female
  Weight: 37 kg

DRUGS (5)
  1. BOSULIF [Suspect]
     Active Substance: BOSUTINIB MONOHYDRATE
     Indication: CHRONIC MYELOID LEUKAEMIA
     Dosage: 400 MG, 1X/DAY
     Route: 048
  2. BOSULIF [Suspect]
     Active Substance: BOSUTINIB MONOHYDRATE
     Dosage: 100 MG, 2X/DAY
  3. BOSULIF [Suspect]
     Active Substance: BOSUTINIB MONOHYDRATE
     Indication: MYELOID LEUKAEMIA
     Dosage: 200 MG
  4. BOSULIF [Suspect]
     Active Substance: BOSUTINIB MONOHYDRATE
     Dosage: 400 MG, DAILY
  5. TASIGNA [Suspect]
     Active Substance: NILOTINIB
     Dosage: UNK

REACTIONS (21)
  - Aphonia [Unknown]
  - Abdominal rigidity [Unknown]
  - Constipation [Unknown]
  - Gastrooesophageal reflux disease [Unknown]
  - Abdominal pain [Unknown]
  - Stress [Unknown]
  - Clostridium difficile colitis [Unknown]
  - Parkinson^s disease [Not Recovered/Not Resolved]
  - Headache [Recovering/Resolving]
  - Myalgia [Unknown]
  - Decreased appetite [Unknown]
  - Diarrhoea [Unknown]
  - Dyspepsia [Unknown]
  - Oedema peripheral [Unknown]
  - Weight decreased [Unknown]
  - Dyspnoea [Unknown]
  - Peripheral swelling [Unknown]
  - Urine odour abnormal [Unknown]
  - Fluid retention [Unknown]
  - Weight increased [Unknown]
  - Chest pain [Unknown]

NARRATIVE: CASE EVENT DATE: 202006
